FAERS Safety Report 26087304 (Version 1)
Quarter: 2025Q4

REPORT INFORMATION
  Report Type: Spontaneous
  Country: US (occurrence: US)
  Receive Date: 20251125
  Receipt Date: 20251125
  Transmission Date: 20260117
  Serious: Yes (Hospitalization)
  Sender: OTSUKA
  Company Number: US-MMM-Otsuka-U7ETRZ50

PATIENT
  Age: 48 Year
  Sex: Male

DRUGS (5)
  1. ABILIFY [Suspect]
     Active Substance: ARIPIPRAZOLE
     Indication: Bipolar disorder
     Dosage: 5 MG
     Route: 065
  2. ABILIFY [Suspect]
     Active Substance: ARIPIPRAZOLE
     Dosage: 2.5 MG (SLOWLY TITRATED)
     Route: 065
  3. LUMATEPERONE TOSYLATE [Suspect]
     Active Substance: LUMATEPERONE TOSYLATE
     Indication: Bipolar disorder
     Dosage: 10.5 MG, QD
  4. LUMATEPERONE TOSYLATE [Suspect]
     Active Substance: LUMATEPERONE TOSYLATE
     Dosage: 21 MG, QD
  5. LUMATEPERONE TOSYLATE [Suspect]
     Active Substance: LUMATEPERONE TOSYLATE
     Dosage: 42 MG, QD
     Dates: end: 2025

REACTIONS (5)
  - Dehydration [Unknown]
  - Confusional state [Unknown]
  - Hyperhidrosis [Unknown]
  - Tachycardia [Unknown]
  - Tremor [Unknown]

NARRATIVE: CASE EVENT DATE: 20251001
